FAERS Safety Report 10197071 (Version 2)
Quarter: 2014Q2

REPORT INFORMATION
  Report Type: Report from Study
  Country: AU (occurrence: AU)
  Receive Date: 20140527
  Receipt Date: 20140527
  Transmission Date: 20141212
  Serious: Yes (Other)
  Sender: FDA-Public Use
  Company Number: AU-ACTELION-A-CH2007-14417

PATIENT
  Age: 51 Year
  Sex: Female
  Weight: 50.9 kg

DRUGS (9)
  1. TRACLEER [Suspect]
     Indication: PULMONARY ARTERIAL HYPERTENSION
     Dosage: 62.5 MG, BID
     Route: 048
     Dates: start: 20040418, end: 20040517
  2. TRACLEER [Suspect]
     Dosage: 125 MG, BID
     Route: 048
     Dates: start: 20040518
  3. TRACLEER [Suspect]
     Dosage: UNK
     Route: 048
     Dates: end: 20060929
  4. TRACLEER [Suspect]
     Dosage: UNK
     Route: 048
     Dates: end: 20061130
  5. TRACLEER [Suspect]
     Dosage: 125 MG, QD
     Route: 048
     Dates: start: 20070207, end: 20070216
  6. TELMISARTAN [Concomitant]
  7. CARTIA [Concomitant]
  8. PREDNISOLONE [Concomitant]
  9. OMEPRAZOLE [Concomitant]

REACTIONS (7)
  - Hepatotoxicity [Recovered/Resolved]
  - Liver function test abnormal [Recovered/Resolved]
  - Alanine aminotransferase increased [Recovered/Resolved]
  - Blood alkaline phosphatase increased [Recovered/Resolved]
  - Gamma-glutamyltransferase increased [Recovered/Resolved]
  - Hepatic steatosis [Unknown]
  - Gallbladder polyp [Unknown]
